FAERS Safety Report 18337076 (Version 2)
Quarter: 2020Q4

REPORT INFORMATION
  Report Type: Report from Study
  Country: None (occurrence: RO)
  Receive Date: 20201001
  Receipt Date: 20201014
  Transmission Date: 20210113
  Serious: Yes (Death, Hospitalization, Other)
  Sender: FDA-Public Use
  Company Number: RO-ABBVIE-20K-135-3587243-00

PATIENT
  Age: 64 Year
  Sex: Female

DRUGS (2)
  1. DUODOPA [Suspect]
     Active Substance: CARBIDOPA\LEVODOPA
  2. DUODOPA [Suspect]
     Active Substance: CARBIDOPA\LEVODOPA
     Indication: PARKINSON^S DISEASE
     Dosage: DM=12.20 DC=3.70 ED=2.00 NRED=0; DMN=0.00 DCN=0.00 EDN=0.00 NREDN=0
     Route: 050
     Dates: start: 20190205, end: 20201010

REACTIONS (5)
  - Cardio-respiratory arrest [Fatal]
  - Pneumonia [Unknown]
  - Kidney infection [Unknown]
  - Coma [Unknown]
  - Pancreatic neoplasm [Unknown]

NARRATIVE: CASE EVENT DATE: 20200928
